FAERS Safety Report 19945198 (Version 2)
Quarter: 2022Q1

REPORT INFORMATION
  Report Type: Spontaneous
  Country: US (occurrence: US)
  Receive Date: 20211012
  Receipt Date: 20220118
  Transmission Date: 20220423
  Serious: No
  Sender: FDA-Public Use
  Company Number: US-PFIZER INC-2021530703

PATIENT
  Age: 78 Year
  Sex: Female
  Weight: 59.42 kg

DRUGS (2)
  1. RUXIENCE [Suspect]
     Active Substance: RITUXIMAB-PVVR
     Indication: Thrombotic microangiopathy
     Dosage: 589 MG (EVERY TWO MONTHS)
     Route: 042
     Dates: start: 20201112, end: 202012
  2. RUXIENCE [Suspect]
     Active Substance: RITUXIMAB-PVVR
     Dosage: 578 MG (EVERY TWO MONTHS)
     Route: 042
     Dates: start: 20210304, end: 20210506

REACTIONS (3)
  - Weight abnormal [Unknown]
  - Wrong product administered [Unknown]
  - Off label use [Unknown]

NARRATIVE: CASE EVENT DATE: 20201112
